FAERS Safety Report 12986420 (Version 1)
Quarter: 2016Q4

REPORT INFORMATION
  Report Type: Spontaneous
  Country: IT (occurrence: IT)
  Receive Date: 20161130
  Receipt Date: 20161130
  Transmission Date: 20170207
  Serious: Yes (Hospitalization)
  Sender: FDA-Public Use
  Company Number: IT-SA-2016SA216884

PATIENT
  Age: 58 Year
  Sex: Male

DRUGS (5)
  1. CLEXANE [Suspect]
     Active Substance: ENOXAPARIN SODIUM
     Indication: THROMBOSIS PROPHYLAXIS
     Dosage: 4000 IU^S IN THOUSANDS DAILY.
     Route: 051
     Dates: start: 20161011, end: 20161023
  2. FLEXEN (KETOPROFEN) [Suspect]
     Active Substance: KETOPROFEN
     Indication: PROCEDURAL PAIN
     Route: 042
     Dates: start: 20160811, end: 20160811
  3. LIMPIDEX [Concomitant]
     Active Substance: LANSOPRAZOLE
     Dosage: 30MG HARD CAPSULE, 1 UNIT DOSAGE
     Route: 048
  4. RAMIPRIL. [Concomitant]
     Active Substance: RAMIPRIL
     Route: 048
  5. CARDIOASPIRIN [Concomitant]
     Active Substance: ASPIRIN
     Dosage: 100 MG GASTRO-RESISTANT TABLETS, 1 UNIT DOSAGE
     Route: 048

REACTIONS (1)
  - Rash maculo-papular [Recovered/Resolved]

NARRATIVE: CASE EVENT DATE: 20161111
